FAERS Safety Report 4335995-8 (Version None)
Quarter: 2004Q2

REPORT INFORMATION
  Report Type: 
  Country: None (occurrence: None)
  Receive Date: 20040406
  Receipt Date: 20040324
  Transmission Date: 20050107
  Serious: Yes (Hospitalization)
  Sender: FDA-Public Use
  Company Number: 2004019917

PATIENT
  Age: 46 Year
  Sex: Female

DRUGS (7)
  1. NIFEDIPINE [Suspect]
     Indication: ANGINA PECTORIS
     Dosage: 20 MG, ORAL
     Route: 048
  2. ISOSOBIDE DINITRATE (ISOSOBIDE DINITRATE) [Concomitant]
  3. DILTIAZEM [Concomitant]
  4. AMLODIPINE [Concomitant]
  5. NICORANDIL (NICORANDIL) [Concomitant]
  6. ISOSORBIDE MONONITRATE [Concomitant]
  7. PREDNISOLONE [Concomitant]

REACTIONS (6)
  - ANGINA PECTORIS [None]
  - CHEST PAIN [None]
  - DISEASE RECURRENCE [None]
  - DRUG EFFECT DECREASED [None]
  - SYNCOPE [None]
  - URINARY INCONTINENCE [None]
